FAERS Safety Report 16018203 (Version 1)
Quarter: 2019Q1

REPORT INFORMATION
  Report Type: Spontaneous
  Country: US (occurrence: US)
  Receive Date: 20190228
  Receipt Date: 20190228
  Transmission Date: 20190418
  Serious: Yes (Other)
  Sender: FDA-Public Use
  Company Number: US-GILEAD-2019-0393554

PATIENT

DRUGS (2)
  1. CAYSTON [Suspect]
     Active Substance: AZTREONAM
     Indication: SERRATIA INFECTION
     Dosage: 75 MG, TID
     Route: 055
  2. CAYSTON [Suspect]
     Active Substance: AZTREONAM
     Indication: PSEUDOMONAS INFECTION

REACTIONS (2)
  - End stage renal disease [Not Recovered/Not Resolved]
  - Off label use [Not Recovered/Not Resolved]
